FAERS Safety Report 6618719-0 (Version None)
Quarter: 2010Q1

REPORT INFORMATION
  Report Type: 
  Country: None (occurrence: None)
  Receive Date: 20100302
  Receipt Date: 20100218
  Transmission Date: 20100710
  Serious: Yes (Other)
  Sender: FDA-Public Use
  Company Number: A0811130A

PATIENT
  Age: 51 Year
  Sex: Female

DRUGS (3)
  1. ASPIRIN + CAFFEINE + PARACETAMOL (FORMULATION UNKNOWN) (ACETAMINOPHEN [Suspect]
  2. LEVOTHYROXINE SODIUM [Concomitant]
  3. ALPRAZOLAM [Concomitant]

REACTIONS (15)
  - ABDOMINAL DISTENSION [None]
  - ANXIETY [None]
  - BLOOD PRESSURE DECREASED [None]
  - CHEST DISCOMFORT [None]
  - CHEST PAIN [None]
  - CONDITION AGGRAVATED [None]
  - EXPIRED DRUG ADMINISTERED [None]
  - HEADACHE [None]
  - INFLAMMATION [None]
  - LOSS OF CONSCIOUSNESS [None]
  - NAUSEA [None]
  - OROPHARYNGEAL PAIN [None]
  - PAIN [None]
  - PAINFUL RESPIRATION [None]
  - UPPER RESPIRATORY TRACT INFECTION [None]
